FAERS Safety Report 15207179 (Version 4)
Quarter: 2018Q3

REPORT INFORMATION
  Report Type: Spontaneous
  Country: DE (occurrence: DE)
  Receive Date: 20180727
  Receipt Date: 20180827
  Transmission Date: 20181010
  Serious: Yes (Death, Hospitalization)
  Sender: FDA-Public Use
  Company Number: PHHY2018DE056166

PATIENT

DRUGS (1)
  1. PREDNISOLONE. [Suspect]
     Active Substance: PREDNISOLONE
     Indication: RHEUMATOID ARTHRITIS
     Dosage: THE PATIENT TOOK HIGH DOSES
     Route: 065

REACTIONS (5)
  - Cardiac failure [Fatal]
  - Fat tissue increased [Unknown]
  - Dermatosis [Unknown]
  - Osteoporosis [Unknown]
  - Epidural lipomatosis [Unknown]
